FAERS Safety Report 6382965-4 (Version None)
Quarter: 2009Q3

REPORT INFORMATION
  Report Type: 
  Country: None (occurrence: None)
  Receive Date: 20090928
  Receipt Date: 20090928
  Transmission Date: 20100115
  Serious: Yes (Other)
  Sender: FDA-Public Use
  Company Number: None

PATIENT
  Age: 51 Year
  Sex: Male
  Weight: 94.3482 kg

DRUGS (1)
  1. AURO-DRI ISOPROPYL ALCHOL 95% IN AN HYDROGL DEL PHARMACEUTICALS [Suspect]
     Indication: MIDDLE EAR EFFUSION
     Dosage: 4 - 5 DRIPS IN EAR OTIC
     Dates: start: 20090605, end: 20090610

REACTIONS (2)
  - HEARING IMPAIRED [None]
  - TINNITUS [None]
